FAERS Safety Report 15902437 (Version 2)
Quarter: 2019Q1

REPORT INFORMATION
  Report Type: Spontaneous
  Country: US (occurrence: US)
  Receive Date: 20190201
  Receipt Date: 20190221
  Transmission Date: 20190417
  Serious: No
  Sender: FDA-Public Use
  Company Number: US-GLAXOSMITHKLINE-US2019GSK014432

PATIENT
  Sex: Male

DRUGS (1)
  1. TRELEGY ELLIPTA [Suspect]
     Active Substance: FLUTICASONE FUROATE\UMECLIDINIUM BROMIDE\VILANTEROL TRIFENATATE
     Indication: PRODUCT USED FOR UNKNOWN INDICATION
     Dosage: 100/62.5/25 MCG
     Route: 055
     Dates: start: 20181203, end: 20181218

REACTIONS (8)
  - Wheezing [Unknown]
  - Muscle spasms [Unknown]
  - Pollakiuria [Unknown]
  - Fatigue [Unknown]
  - Constipation [Unknown]
  - Myalgia [Unknown]
  - Somnolence [Unknown]
  - Cough [Unknown]
